FAERS Safety Report 6693618-7 (Version None)
Quarter: 2010Q2

REPORT INFORMATION
  Report Type: 
  Country: None (occurrence: None)
  Receive Date: 20100420
  Receipt Date: 20100402
  Transmission Date: 20101027
  Serious: No
  Sender: FDA-Public Use
  Company Number: 20097803

PATIENT
  Age: 42 Year
  Sex: Female

DRUGS (2)
  1. BACLOFEN [Suspect]
     Indication: MUSCLE SPASTICITY
     Dosage: MCG, DAILY, INTRATHECAL
     Route: 037
  2. DEPAS [Concomitant]

REACTIONS (7)
  - ALLERGY TO METALS [None]
  - DEVICE DISLOCATION [None]
  - DRUG INEFFECTIVE [None]
  - FLUID RETENTION [None]
  - INTRACRANIAL HYPOTENSION [None]
  - MUSCLE CONTRACTURE [None]
  - PAIN [None]
